FAERS Safety Report 7494963-8 (Version None)
Quarter: 2011Q2

REPORT INFORMATION
  Report Type: 
  Country: None (occurrence: None)
  Receive Date: 20110520
  Receipt Date: 20110422
  Transmission Date: 20111010
  Serious: No
  Sender: FDA-Public Use
  Company Number: US-BAYER-2011-035895

PATIENT
  Age: 79 Year
  Sex: Male
  Weight: 85.261 kg

DRUGS (2)
  1. ASPIRIN [Concomitant]
  2. ALEVE (CAPLET) [Suspect]
     Indication: ANALGESIC THERAPY
     Dosage: 220 MG, QD, BOTTLE COUNT 150S + 50S BONUS
     Route: 048
     Dates: start: 20110408

REACTIONS (1)
  - PAIN [None]
